FAERS Safety Report 10609983 (Version 1)
Quarter: 2014Q4

REPORT INFORMATION
  Report Type: Spontaneous
  Country: US (occurrence: US)
  Receive Date: 20141126
  Receipt Date: 20141126
  Transmission Date: 20150529
  Serious: Yes (Other)
  Sender: FDA-Public Use
  Company Number: US-PFIZER INC-2014324050

PATIENT
  Age: 9 Year
  Sex: Female
  Weight: 23 kg

DRUGS (3)
  1. MIRALAX [Concomitant]
     Active Substance: POLYETHYLENE GLYCOL 3350
     Dosage: UNK
  2. GENOTROPIN [Suspect]
     Active Substance: SOMATROPIN
     Indication: DWARFISM
     Dosage: 0.9 MG, DAILY
     Route: 058
     Dates: start: 20140922
  3. FLUOR [Concomitant]
     Dosage: 0.5 MG, UNK

REACTIONS (2)
  - Injection site bruising [Unknown]
  - Joint dislocation [Unknown]

NARRATIVE: CASE EVENT DATE: 201411
